FAERS Safety Report 25722440 (Version 1)
Quarter: 2025Q3

REPORT INFORMATION
  Report Type: Spontaneous
  Country: CH (occurrence: CH)
  Receive Date: 20250825
  Receipt Date: 20250825
  Transmission Date: 20251020
  Serious: Yes (Other)
  Sender: INCYTE
  Company Number: CH-EVENT-003981

PATIENT

DRUGS (3)
  1. TAFASITAMAB [Suspect]
     Active Substance: TAFASITAMAB
     Indication: Follicular lymphoma
     Route: 065
  2. RITUXIMAB [Suspect]
     Active Substance: RITUXIMAB
     Indication: Follicular lymphoma
     Route: 065
  3. LENALIDOMIDE [Suspect]
     Active Substance: LENALIDOMIDE
     Indication: Follicular lymphoma
     Route: 065

REACTIONS (18)
  - Follicular lymphoma [Unknown]
  - Thrombocytopenia [Unknown]
  - Neutropenia [Unknown]
  - Fatigue [Unknown]
  - Asthenia [Unknown]
  - Headache [Unknown]
  - Mucosal dryness [Unknown]
  - Abdominal distension [Unknown]
  - Hyperaesthesia teeth [Unknown]
  - C-reactive protein increased [Unknown]
  - Dyspnoea [Unknown]
  - Flank pain [Unknown]
  - Myalgia [Unknown]
  - Muscle spasms [Unknown]
  - Oedema peripheral [Unknown]
  - Weight decreased [Unknown]
  - Disease progression [Unknown]
  - Off label use [Unknown]
